FAERS Safety Report 9261646 (Version 1)
Quarter: 2013Q2

REPORT INFORMATION
  Report Type: Spontaneous
  Country: US (occurrence: US)
  Receive Date: 20130429
  Receipt Date: 20130429
  Transmission Date: 20140414
  Serious: Yes (Other)
  Sender: FDA-Public Use
  Company Number: US-PFIZER INC-2011088539

PATIENT
  Age: 45 Year
  Sex: Female
  Weight: 72.56 kg

DRUGS (9)
  1. EFFEXOR XR [Suspect]
     Indication: ANXIETY
     Dosage: 150 MG, 2X/DAY
     Dates: end: 201304
  2. EFFEXOR XR [Suspect]
     Indication: DEPRESSION
  3. EFFEXOR XR [Suspect]
     Indication: PANIC ATTACK
  4. PROZAC [Suspect]
     Indication: ANXIETY
     Dosage: 25 MG, 1X/DAY
     Dates: start: 20130422
  5. PROZAC [Suspect]
     Indication: DEPRESSION
  6. PROZAC [Suspect]
     Indication: PANIC ATTACK
  7. CLONAZEPAM [Concomitant]
     Indication: ANXIETY
     Dosage: 1 MG, 4X/DAY
  8. CLONAZEPAM [Concomitant]
     Indication: DEPRESSION
  9. CLONAZEPAM [Concomitant]
     Indication: PANIC ATTACK

REACTIONS (3)
  - Mental status changes [Not Recovered/Not Resolved]
  - Malaise [Not Recovered/Not Resolved]
  - Drug ineffective [Unknown]
